FAERS Safety Report 8018636 (Version 2)
Quarter: 2013Q3

REPORT INFORMATION
  Report Type: Report from Study
  Country: ES (occurrence: ES)
  Receive Date: 20110701
  Receipt Date: 20130923
  Transmission Date: 20140515
  Serious: Yes (Hospitalization)
  Sender: FDA-Public Use
  Company Number: ES-ROCHE-785289

PATIENT
  Age: 80 Year
  Sex: Female

DRUGS (9)
  1. BEVACIZUMAB [Suspect]
     Indication: BREAST CANCER
     Dosage: DATE OF LAST DOSE PRIOR TO SAE: 27/MAY/2011
     Route: 042
     Dates: start: 20110323, end: 20110527
  2. LETROZOLE [Suspect]
     Indication: BREAST CANCER
     Dosage: LAST DOSE PRIOR TO SAE 14 JUN 2011.
     Route: 048
     Dates: start: 201103, end: 20110614
  3. ZOLEDRONIC ACID [Suspect]
     Indication: BREAST CANCER
     Dosage: DATE OF LAST DOSE PRIOR TO SAE: 27/MAY/2011
     Route: 042
     Dates: start: 20110318, end: 20110527
  4. OMEPRAZOL [Concomitant]
     Route: 065
     Dates: start: 20110223
  5. PARACETAMOL [Concomitant]
     Route: 065
  6. ZOLPIDEM [Concomitant]
     Route: 065
     Dates: end: 20110222
  7. ALPRAZOLAM [Concomitant]
     Route: 065
     Dates: start: 20110223
  8. ENANTYUM [Concomitant]
     Route: 065
     Dates: start: 20110223
  9. NATECAL (SPAIN) [Concomitant]

REACTIONS (1)
  - Pancreatitis [Recovered/Resolved]
